FAERS Safety Report 8464562-X (Version None)
Quarter: 2012Q2

REPORT INFORMATION
  Report Type: 
  Country: None (occurrence: None)
  Receive Date: 20120620
  Receipt Date: 20120620
  Transmission Date: 20120825
  Serious: Yes (Other)
  Sender: FDA-Public Use
  Company Number: None

PATIENT
  Age: 82 Year
  Sex: Male
  Weight: 77.5651 kg

DRUGS (2)
  1. UNKNOWN MEDICATION (ALL OTHER THERAPEUTIC PRODUCTS) UNSPECIFIED [Concomitant]
  2. LISTERINE POCKETPAK COOLMINT (ORAL CARE PRODUCTS) FILMSTRIP [Suspect]
     Indication: BREATH ODOUR
     Dosage: 1 DOSE(S), 1 IN 1 DAY, ORAL
     Route: 048

REACTIONS (3)
  - GASTRIC ULCER [None]
  - PRODUCT QUALITY ISSUE [None]
  - CONDITION AGGRAVATED [None]
